FAERS Safety Report 18923785 (Version 1)
Quarter: 2021Q1

REPORT INFORMATION
  Report Type: Not Available
  Country: None (occurrence: None)
  Receive Date: 20210222
  Receipt Date: 20210222
  Transmission Date: 20210420
  Serious: Yes (Other)
  Sender: FDA-Public Use
  Company Number: US-AKORN-161971

PATIENT
  Age: 64 Year
  Sex: Female

DRUGS (1)
  1. CIPROFLOXACIN OPHTHALMIC SOLUTION, USP [Suspect]
     Active Substance: CIPROFLOXACIN HYDROCHLORIDE

REACTIONS (2)
  - Drug hypersensitivity [Not Recovered/Not Resolved]
  - Nerve injury [Not Recovered/Not Resolved]
